FAERS Safety Report 7863562-8 (Version None)
Quarter: 2011Q4

REPORT INFORMATION
  Report Type: 
  Country: None (occurrence: None)
  Receive Date: 20111027
  Receipt Date: 20111014
  Transmission Date: 20120403
  Serious: Yes (Other)
  Sender: FDA-Public Use
  Company Number: NZ-MYLANLABS-2011S1021328

PATIENT
  Age: 61 Year
  Sex: Female

DRUGS (5)
  1. TEGRETOL [Concomitant]
     Indication: BIPOLAR DISORDER
  2. SIMVASTATIN [Concomitant]
     Indication: BLOOD CHOLESTEROL INCREASED
  3. LITHIUM CITRATE [Concomitant]
     Indication: BIPOLAR DISORDER
  4. VITAMIN D [Concomitant]
     Indication: PRODUCT USED FOR UNKNOWN INDICATION
  5. LAMOTRIGINE [Suspect]
     Indication: BIPOLAR DISORDER

REACTIONS (2)
  - FEELING ABNORMAL [None]
  - HEART RATE DECREASED [None]
